FAERS Safety Report 6841665-4 (Version None)
Quarter: 2010Q3

REPORT INFORMATION
  Report Type: 
  Country: None (occurrence: None)
  Receive Date: 20100714
  Receipt Date: 20070710
  Transmission Date: 20110219
  Serious: No
  Sender: FDA-Public Use
  Company Number: US-PFIZER INC-2007058662

PATIENT
  Sex: Male
  Weight: 53.6 kg

DRUGS (6)
  1. CHANTIX [Suspect]
     Indication: SMOKING CESSATION THERAPY
     Dates: start: 20070709
  2. MUCINEX [Concomitant]
  3. CLONAZEPAM [Concomitant]
  4. CYCLOBENZAPRINE [Concomitant]
     Indication: BACK PAIN
  5. BENZONATATE [Concomitant]
     Indication: BRONCHITIS
  6. EFFEXOR XR [Concomitant]

REACTIONS (1)
  - HEADACHE [None]
